FAERS Safety Report 5887958-9 (Version None)
Quarter: 2008Q3

REPORT INFORMATION
  Report Type: 
  Country: None (occurrence: None)
  Receive Date: 20080918
  Receipt Date: 20080908
  Transmission Date: 20090109
  Serious: Yes (Hospitalization)
  Sender: FDA-Public Use
  Company Number: B0531494A

PATIENT
  Age: 62 Year
  Sex: Female

DRUGS (7)
  1. SERETIDE [Suspect]
     Indication: ASTHMA
     Dosage: 2PUFF TWICE PER DAY
     Route: 055
     Dates: start: 20071201
  2. VENTOLIN [Suspect]
     Indication: ASTHMA
     Dosage: 100MCG AS REQUIRED
     Route: 055
  3. ANTIHISTAMINE [Concomitant]
  4. BENDROFLUAZIDE [Concomitant]
  5. SEROXAT [Concomitant]
  6. ADIZEM [Concomitant]
  7. SPIRIVA [Concomitant]

REACTIONS (6)
  - ASTHMA [None]
  - CHEST DISCOMFORT [None]
  - DYSPNOEA [None]
  - MIDDLE INSOMNIA [None]
  - MOUTH ULCERATION [None]
  - PNEUMONIA [None]
